FAERS Safety Report 23766353 (Version 2)
Quarter: 2024Q2

REPORT INFORMATION
  Report Type: Spontaneous
  Country: FR (occurrence: FR)
  Receive Date: 20240422
  Receipt Date: 20240522
  Transmission Date: 20240716
  Serious: Yes (Death, Life-Threatening, Hospitalization, Other)
  Sender: FDA-Public Use
  Company Number: None

PATIENT
  Age: 71 Year
  Sex: Female
  Weight: 58 kg

DRUGS (10)
  1. CAPECITABINE [Suspect]
     Active Substance: CAPECITABINE
     Indication: Colon cancer
     Dates: start: 20230608
  2. CAPECITABINE [Suspect]
     Active Substance: CAPECITABINE
     Indication: Colon cancer
     Dosage: DAILY DOSE: 1 DOSAGE FORM
     Route: 048
     Dates: start: 20230612, end: 20230626
  3. MIDAZOLAM [Suspect]
     Active Substance: MIDAZOLAM
     Indication: Analgesic therapy
  4. MIDAZOLAM [Suspect]
     Active Substance: MIDAZOLAM
     Indication: Anxiety
  5. AMISULPRIDE [Concomitant]
     Active Substance: AMISULPRIDE
     Dosage: 2 TAB IN EVENING?DAILY DOSE: 2 DOSAGE FORM
     Route: 048
  6. SULPIRIDE [Concomitant]
     Active Substance: SULPIRIDE
     Dosage: 1 TABLET AT LUNCH AND 1+1/2 TABLET IN THE EVENING
     Route: 048
  7. Trihexyphenidyl Parkinane Lp [Concomitant]
     Dosage: 1 TABLET MORNING AND EVENING ?DAILY DOSE: 2 DOSAGE FORM
     Route: 048
  8. Insulin Lantin [Concomitant]
     Dosage: 14IU IN THE MORNING
     Route: 058
  9. Ramipril SNC [Concomitant]
     Dosage: 1 TABLET PER DAY
     Route: 048
  10. Metoclopramide SNC [Concomitant]
     Route: 048

REACTIONS (20)
  - Febrile bone marrow aplasia [Fatal]
  - Colitis [Fatal]
  - Encephalitis [Fatal]
  - Perineal ulceration [Unknown]
  - Clostridium difficile colitis [Unknown]
  - Encephalopathy [Unknown]
  - Coma [Unknown]
  - Stomatitis [Unknown]
  - Acute kidney injury [Unknown]
  - Herpes virus infection [Unknown]
  - Pancytopenia [Unknown]
  - Salivary hypersecretion [Unknown]
  - Tachypnoea [Unknown]
  - Pain [Unknown]
  - Somnolence [Unknown]
  - Mouth ulceration [Unknown]
  - Face oedema [Unknown]
  - Mouth haemorrhage [Unknown]
  - Skin lesion [Unknown]
  - Off label use [Recovered/Resolved]

NARRATIVE: CASE EVENT DATE: 20230626
